FAERS Safety Report 11118148 (Version 1)
Quarter: 2015Q2

REPORT INFORMATION
  Report Type: Spontaneous
  Country: SE (occurrence: SE)
  Receive Date: 20150518
  Receipt Date: 20150518
  Transmission Date: 20150821
  Serious: Yes (Death, Other)
  Sender: FDA-Public Use
  Company Number: SE-SUN PHARMACEUTICAL INDUSTRIES LTD-2015R1-97503

PATIENT
  Age: 29 Year
  Sex: Male

DRUGS (5)
  1. FLUCONAZOLE. [Suspect]
     Active Substance: FLUCONAZOLE
     Indication: NEOPLASM PROPHYLAXIS
     Route: 065
  2. VITAMIN K [Concomitant]
     Active Substance: PHYTONADIONE
     Indication: INTERNATIONAL NORMALISED RATIO
     Route: 065
  3. ACICLOVIR [Concomitant]
     Active Substance: ACYCLOVIR
     Indication: NEOPLASM PROPHYLAXIS
     Route: 065
  4. BRENTUXIMAB VEDOTIN [Interacting]
     Active Substance: BRENTUXIMAB VEDOTIN
     Indication: PRODUCT USED FOR UNKNOWN INDICATION
     Dosage: 135 MG, CYCLICAL
     Route: 065
  5. PREDNISONE. [Concomitant]
     Active Substance: PREDNISONE
     Indication: NEOPLASM PROPHYLAXIS
     Route: 065

REACTIONS (3)
  - Drug interaction [Unknown]
  - Hepatitis fulminant [Unknown]
  - Death [Fatal]
